FAERS Safety Report 15074901 (Version 1)
Quarter: 2018Q2

REPORT INFORMATION
  Report Type: Spontaneous
  Country: US (occurrence: US)
  Receive Date: 20180627
  Receipt Date: 20180627
  Transmission Date: 20180711
  Serious: Yes (Hospitalization, Other)
  Sender: FDA-Public Use
  Company Number: US-SAOL THERAPEUTICS-2017SAO01400

PATIENT
  Sex: Female
  Weight: 73.1 kg

DRUGS (2)
  1. BACLOFEN. [Suspect]
     Active Substance: BACLOFEN
     Indication: MUSCLE SPASTICITY
     Dosage: 2546.1 ?G, \DAY
     Route: 037
  2. BACLOFEN. [Suspect]
     Active Substance: BACLOFEN
     Indication: CEREBRAL PALSY

REACTIONS (6)
  - Muscle spasticity [Unknown]
  - Hyperhidrosis [Unknown]
  - Tachycardia [Unknown]
  - Urine analysis abnormal [Unknown]
  - Pain [Unknown]
  - Device failure [Recovered/Resolved]
